FAERS Safety Report 6774304-1 (Version None)
Quarter: 2010Q2

REPORT INFORMATION
  Report Type: 
  Country: None (occurrence: None)
  Receive Date: 20100617
  Receipt Date: 20100614
  Transmission Date: 20101027
  Serious: Yes (Life-Threatening)
  Sender: FDA-Public Use
  Company Number: DK-PFIZER INC-2010063802

PATIENT
  Age: 34 Year
  Sex: Female
  Weight: 78 kg

DRUGS (1)
  1. PROSTINFENEM [Suspect]
     Indication: UTERINE ATONY
     Dosage: 250 UG, 4X/DAY
     Route: 030
     Dates: start: 20100507, end: 20100507

REACTIONS (2)
  - VENTRICULAR FIBRILLATION [None]
  - VENTRICULAR TACHYCARDIA [None]
